FAERS Safety Report 14195497 (Version 1)
Quarter: 2017Q4

REPORT INFORMATION
  Report Type: Spontaneous
  Country: NO (occurrence: NO)
  Receive Date: 20171116
  Receipt Date: 20171116
  Transmission Date: 20180321
  Serious: Yes (Hospitalization, Other)
  Sender: FDA-Public Use
  Company Number: NO-009507513-1711NOR004049

PATIENT
  Age: 50 Year
  Sex: Female

DRUGS (7)
  1. REMERON [Suspect]
     Active Substance: MIRTAZAPINE
     Indication: TENSION
     Dosage: 30 MG, QD
     Route: 048
     Dates: start: 201611, end: 2016
  2. EXFORGE [Concomitant]
     Active Substance: AMLODIPINE BESYLATE\VALSARTAN
     Dosage: 10/160
     Dates: start: 201706
  3. REMERON [Suspect]
     Active Substance: MIRTAZAPINE
     Dosage: DIVIDED 30 MG COATED TABLETS
     Route: 048
  4. CETIRIZINE HYDROCHLORIDE. [Concomitant]
     Active Substance: CETIRIZINE HYDROCHLORIDE
     Dosage: 10 MG, UNK
     Dates: start: 2011
  5. REMERON [Suspect]
     Active Substance: MIRTAZAPINE
     Indication: TENSION
     Dosage: 30 MG, UNK
     Route: 048
     Dates: start: 2016, end: 201706
  6. GLUCOPHAGE [Concomitant]
     Active Substance: METFORMIN HYDROCHLORIDE
     Dosage: 500 MG, UNK
  7. REMERON [Suspect]
     Active Substance: MIRTAZAPINE
     Dosage: 15 MG, QD
     Route: 048
     Dates: start: 201706

REACTIONS (5)
  - Head discomfort [Unknown]
  - Asthenopia [Unknown]
  - Product availability issue [Unknown]
  - Malaise [Unknown]
  - Hospitalisation [Unknown]
